FAERS Safety Report 8481356-X (Version None)
Quarter: 2012Q3

REPORT INFORMATION
  Report Type: 
  Country: None (occurrence: None)
  Receive Date: 20120702
  Receipt Date: 20120622
  Transmission Date: 20120928
  Serious: Yes (Other)
  Sender: FDA-Public Use
  Company Number: US-JNJFOC-20120604272

PATIENT
  Sex: Male
  Weight: 77.1 kg

DRUGS (23)
  1. REMICADE [Suspect]
     Route: 042
     Dates: start: 20111012
  2. REMICADE [Suspect]
     Route: 042
     Dates: start: 20110228
  3. REMICADE [Suspect]
     Route: 042
     Dates: start: 20110720
  4. REMICADE [Suspect]
     Route: 042
     Dates: start: 20100623
  5. REMICADE [Suspect]
     Route: 042
     Dates: start: 20111121
  6. ACETAMINOPHEN [Concomitant]
     Indication: PREMEDICATION
     Route: 065
  7. ZOFRAN [Concomitant]
     Indication: NAUSEA
     Route: 065
     Dates: start: 20120611
  8. REMICADE [Suspect]
     Route: 042
     Dates: start: 20110426
  9. REMICADE [Suspect]
     Route: 042
     Dates: start: 20120104
  10. REMICADE [Suspect]
     Route: 042
     Dates: start: 20110105
  11. REMICADE [Suspect]
     Route: 042
     Dates: start: 20110831
  12. REMICADE [Suspect]
     Route: 042
     Dates: start: 20120215
  13. REMICADE [Suspect]
     Dosage: IN 250 ML NORMAL SALINE
     Route: 042
     Dates: start: 20100609
  14. REMICADE [Suspect]
     Route: 042
  15. REMICADE [Suspect]
     Route: 042
     Dates: start: 20101119
  16. REMICADE [Suspect]
     Dosage: IN 250 ML NORMAL SALINE
     Route: 042
     Dates: start: 20120605, end: 20120605
  17. LIALDA [Concomitant]
     Route: 065
  18. CYCLOBENZAPRINE [Concomitant]
     Indication: MUSCLE SPASMS
     Route: 065
     Dates: start: 20120611
  19. BENADRYL [Concomitant]
     Indication: PREMEDICATION
     Route: 042
  20. REMICADE [Suspect]
     Indication: CROHN'S DISEASE
     Route: 042
     Dates: start: 20100915
  21. REMICADE [Suspect]
     Route: 042
     Dates: start: 20110608
  22. REMICADE [Suspect]
     Route: 042
     Dates: start: 20100721
  23. REMICADE [Suspect]
     Route: 042
     Dates: start: 20120328

REACTIONS (8)
  - FISTULA [None]
  - INFUSION RELATED REACTION [None]
  - FLUSHING [None]
  - CHEST DISCOMFORT [None]
  - NAUSEA [None]
  - HYPERTENSION [None]
  - ABSCESS [None]
  - WHITE BLOOD CELL COUNT DECREASED [None]
